FAERS Safety Report 7481438-5 (Version None)
Quarter: 2011Q2

REPORT INFORMATION
  Report Type: 
  Country: None (occurrence: None)
  Receive Date: 20110516
  Receipt Date: 20110502
  Transmission Date: 20111010
  Serious: Yes (Hospitalization, Other)
  Sender: FDA-Public Use
  Company Number: US-CELGENEUS-163-21880-11050346

PATIENT
  Sex: Female

DRUGS (6)
  1. LASIX [Concomitant]
     Dosage: 20 MILLIGRAM
     Route: 065
  2. CARAFATE [Concomitant]
     Route: 065
  3. PERCOCET [Concomitant]
     Route: 065
  4. MIRALAX [Concomitant]
     Route: 065
  5. PRILOSEC [Concomitant]
     Route: 065
  6. REVLIMID [Suspect]
     Indication: MULTIPLE MYELOMA
     Dosage: 10 MILLIGRAM
     Route: 048
     Dates: start: 20100401

REACTIONS (2)
  - FALL [None]
  - TRAUMATIC BRAIN INJURY [None]
